FAERS Safety Report 8013597-X (Version None)
Quarter: 2011Q4

REPORT INFORMATION
  Report Type: 
  Country: None (occurrence: None)
  Receive Date: 20111229
  Receipt Date: 20111220
  Transmission Date: 20120403
  Serious: Yes (Hospitalization)
  Sender: FDA-Public Use
  Company Number: US-BAYER-2011-059231

PATIENT
  Age: 50 Year
  Sex: Female
  Weight: 130.5 kg

DRUGS (27)
  1. YASMIN [Suspect]
     Indication: MENOPAUSAL SYMPTOMS
     Dosage: UNK
     Dates: start: 20050103, end: 20080704
  2. EVENING PRIMROSE OIL [Concomitant]
     Dosage: UNK
     Dates: start: 19900101
  3. BENICAR [Concomitant]
     Dosage: UNK
     Dates: start: 19920101
  4. FUROSEMIDE [Concomitant]
     Dosage: 20 MG, QD
     Route: 048
     Dates: start: 19920101
  5. FISH OIL [Concomitant]
     Dosage: UNK
     Dates: start: 19900101
  6. METHYLPREDNISOLONE [Concomitant]
     Dosage: 4 MG, UNK
     Dates: start: 20080625
  7. SYNVISC [Concomitant]
  8. ZYRTEC [Concomitant]
     Dosage: 10 MG, QD
     Route: 048
  9. ZINC LETHICIN [Concomitant]
     Dosage: UNK
     Dates: start: 19900101
  10. CEFDINIR [Concomitant]
     Dosage: UNK
     Dates: start: 20080401
  11. TUSSIONEX [Concomitant]
     Dosage: 1 DF, BID
     Route: 048
     Dates: start: 20080825
  12. BORAGE OIL [Concomitant]
     Dosage: UNK
     Dates: start: 19900101
  13. AVAPRO [Concomitant]
     Dosage: UNK
     Dates: start: 19920101
  14. OMNICEF [Concomitant]
     Indication: SINUSITIS
  15. AMITRIPTYLINE [Concomitant]
  16. SYNTHROID [Concomitant]
     Dosage: UNK
     Dates: start: 20050201, end: 20100101
  17. LASIX [Concomitant]
  18. CALCIUM ACETATE [Concomitant]
     Dosage: UNK
     Dates: start: 19900101
  19. GINSENG [Concomitant]
     Dosage: UNK
     Dates: start: 19900101
  20. OSTEO-BI-PO4 INTERPRETED PHOSPHATE) [Concomitant]
     Dosage: UNK
     Dates: start: 19900101
  21. VITAMIN E [Concomitant]
     Dosage: UNK
     Dates: start: 19900101
  22. DIOVAN [Concomitant]
     Dosage: 12.5 MG, BID
     Route: 048
     Dates: start: 20070501, end: 20100201
  23. LEVAQUIN [Concomitant]
     Dosage: UNK
     Dates: start: 20080601
  24. CORTICOSTEROIDS [Concomitant]
  25. DROSPIRENONE AND ETHINYL ESTRADIOL [Suspect]
     Indication: MENOPAUSAL SYMPTOMS
     Dosage: UNK
     Dates: start: 20080705, end: 20080707
  26. KENALOG [Concomitant]
     Indication: SINUSITIS
  27. DECADRON [Concomitant]
     Indication: SINUSITIS

REACTIONS (6)
  - DEEP VEIN THROMBOSIS [None]
  - GENERAL PHYSICAL HEALTH DETERIORATION [None]
  - EMOTIONAL DISTRESS [None]
  - ANXIETY [None]
  - OEDEMA PERIPHERAL [None]
  - PAIN [None]
